FAERS Safety Report 24675684 (Version 8)
Quarter: 2025Q4

REPORT INFORMATION
  Report Type: Spontaneous
  Country: IN (occurrence: IN)
  Receive Date: 20241128
  Receipt Date: 20251204
  Transmission Date: 20260118
  Serious: Yes (Hospitalization, Other)
  Sender: PFIZER
  Company Number: IN-PFIZER INC-PV202400154464

PATIENT
  Age: 76 Year
  Sex: Male

DRUGS (5)
  1. LORLATINIB [Suspect]
     Active Substance: LORLATINIB
     Indication: Lung neoplasm malignant
     Dosage: 100 MG
     Route: 048
     Dates: start: 20240923, end: 20241120
  2. LORLATINIB [Suspect]
     Active Substance: LORLATINIB
     Dosage: REDUCED DOSE
     Route: 048
     Dates: start: 20241205
  3. LORLATINIB [Suspect]
     Active Substance: LORLATINIB
     Dosage: 100 MG (3 DAYS ON/1 DAY OFF)
     Route: 048
  4. LORLATINIB [Suspect]
     Active Substance: LORLATINIB
     Dosage: 50 MG, 1X/DAY
     Route: 048
     Dates: end: 20250505
  5. LORLATINIB [Suspect]
     Active Substance: LORLATINIB
     Dosage: 25 MG, 1X/DAY
     Route: 048

REACTIONS (11)
  - Urinary tract obstruction [Unknown]
  - Urinary tract infection [Unknown]
  - Feeding disorder [Unknown]
  - Hallucination [Unknown]
  - Decubitus ulcer [Unknown]
  - Osteoporosis [Unknown]
  - General physical health deterioration [Recovering/Resolving]
  - Amnesia [Unknown]
  - Dyspepsia [Unknown]
  - Off label use [Unknown]
  - Off label use [Unknown]

NARRATIVE: CASE EVENT DATE: 20250707
